FAERS Safety Report 16124165 (Version 1)
Quarter: 2019Q1

REPORT INFORMATION
  Report Type: Spontaneous
  Country: HR (occurrence: HR)
  Receive Date: 20190327
  Receipt Date: 20190327
  Transmission Date: 20190418
  Serious: Yes (Hospitalization)
  Sender: FDA-Public Use
  Company Number: HR-PFIZER INC-2019127721

PATIENT
  Age: 54 Year
  Sex: Male

DRUGS (6)
  1. AMLODIPINE/RAMIPRIL [Suspect]
     Active Substance: AMLODIPINE\RAMIPRIL
     Dosage: 5/5 MG
  2. ATORVASTATIN CALCIUM. [Suspect]
     Active Substance: ATORVASTATIN CALCIUM
     Dosage: 20 MG, UNK
  3. METFORMIN [Suspect]
     Active Substance: METFORMIN HYDROCHLORIDE
     Dosage: 850 MG, 2X/DAY
  4. DABIGATRAN [Suspect]
     Active Substance: DABIGATRAN
     Dosage: 150 MG, 2X/DAY
  5. CLOPIDOGREL [Suspect]
     Active Substance: CLOPIDOGREL BISULFATE
     Dosage: 75 MG, UNK
  6. AMIODARON [AMIODARONE] [Suspect]
     Active Substance: AMIODARONE
     Dosage: 200 MG, UNK

REACTIONS (1)
  - Gastrointestinal haemorrhage [Unknown]

NARRATIVE: CASE EVENT DATE: 201810
